FAERS Safety Report 8655391 (Version 2)
Quarter: 2013Q3

REPORT INFORMATION
  Report Type: Spontaneous
  Country: US (occurrence: US)
  Receive Date: 20120709
  Receipt Date: 20130805
  Transmission Date: 20140515
  Serious: Yes (Other)
  Sender: FDA-Public Use
  Company Number: US-GENZYME-FABR-1002602

PATIENT
  Sex: Male

DRUGS (2)
  1. FABRAZYME [Suspect]
     Indication: FABRY^S DISEASE
     Dosage: 40 MG, Q2W
     Route: 042
     Dates: start: 201206
  2. FABRAZYME [Suspect]
     Dosage: 1 MG/KG, UNK
     Route: 042

REACTIONS (1)
  - Apparent death [Unknown]
